FAERS Safety Report 4761535-5 (Version None)
Quarter: 2005Q3

REPORT INFORMATION
  Report Type: 
  Country: None (occurrence: None)
  Receive Date: 20050906
  Receipt Date: 20050422
  Transmission Date: 20060218
  Serious: Yes (Other)
  Sender: FDA-Public Use
  Company Number: 2005AP02494

PATIENT
  Age: 19772 Day
  Sex: Female

DRUGS (2)
  1. ARIMIDEX [Suspect]
     Indication: BREAST CANCER
     Route: 048
     Dates: start: 20050323, end: 20050420
  2. GASTER [Concomitant]
     Route: 048
     Dates: start: 19980101

REACTIONS (6)
  - ARTHRALGIA [None]
  - MALAISE [None]
  - MYALGIA [None]
  - PHARYNGOLARYNGEAL PAIN [None]
  - PYREXIA [None]
  - RETINAL HAEMORRHAGE [None]
